FAERS Safety Report 18760603 (Version 1)
Quarter: 2021Q1

REPORT INFORMATION
  Report Type: Spontaneous
  Country: US (occurrence: US)
  Receive Date: 20210119
  Receipt Date: 20210119
  Transmission Date: 20210419
  Serious: No
  Sender: FDA-Public Use
  Company Number: US-ROCHE-2479329

PATIENT
  Age: 63 Year
  Sex: Male
  Weight: 113.7 kg

DRUGS (10)
  1. ROXICODONE [Concomitant]
     Active Substance: OXYCODONE HYDROCHLORIDE
     Indication: PAIN
     Route: 048
     Dates: start: 20191023
  2. ZYLOPRIM [Concomitant]
     Active Substance: ALLOPURINOL
     Route: 048
     Dates: start: 20191022
  3. THIAMINE. [Concomitant]
     Active Substance: THIAMINE
     Indication: ALCOHOLISM
     Route: 048
     Dates: start: 20191017
  4. NORMAL SALINE [Concomitant]
     Active Substance: SODIUM CHLORIDE
     Dosage: 75 ML/HR
     Route: 042
     Dates: start: 20191025
  5. RITUXAN [Suspect]
     Active Substance: RITUXIMAB
     Dosage: 800 UNITS IV ONCE
     Route: 042
     Dates: start: 20191025
  6. INFLUENZA VACCINE [Concomitant]
     Active Substance: INFLUENZA VIRUS VACCINE
     Dosage: ONCE
     Route: 042
     Dates: start: 20191025
  7. HEPARIN [Concomitant]
     Active Substance: HEPARIN SODIUM
     Indication: THROMBOSIS PROPHYLAXIS
     Dosage: 5000 UNITS, Q 8 HOURS
     Route: 058
     Dates: start: 20191018
  8. RITUXAN [Suspect]
     Active Substance: RITUXIMAB
     Indication: B-CELL LYMPHOMA
     Route: 042
  9. LOPRESSOR [Concomitant]
     Active Substance: METOPROLOL TARTRATE
     Indication: ATRIAL FIBRILLATION
     Route: 048
     Dates: start: 20191021
  10. FOLVITE [Concomitant]
     Active Substance: FOLIC ACID
     Indication: ALCOHOLISM
     Route: 048
     Dates: start: 20191017

REACTIONS (4)
  - Infusion related reaction [Unknown]
  - Hypertension [Recovered/Resolved]
  - Hypertension [Unknown]
  - Chills [Recovered/Resolved]

NARRATIVE: CASE EVENT DATE: 20191025
